FAERS Safety Report 9981273 (Version 4)
Quarter: 2014Q2

REPORT INFORMATION
  Report Type: Report from Study
  Country: KR (occurrence: KR)
  Receive Date: 20140307
  Receipt Date: 20140430
  Transmission Date: 20141212
  Serious: Yes (Hospitalization, Disabling, Other)
  Sender: FDA-Public Use
  Company Number: KR-PFIZER INC-2010054029

PATIENT
  Age: 26 Year
  Sex: Male
  Weight: 51.7 kg

DRUGS (3)
  1. TOFACITINIB CITRATE [Suspect]
     Indication: PROPHYLAXIS AGAINST TRANSPLANT REJECTION
     Dosage: 10 MG, 2X/DAY
     Route: 048
     Dates: start: 20091027, end: 20100510
  2. CELLCEPT [Suspect]
     Indication: IMMUNOSUPPRESSION
     Dosage: 1000MG/AM; 750MG/PM
     Route: 048
     Dates: start: 20081231, end: 20100429
  3. CALCORT [Suspect]
     Indication: PROPHYLAXIS AGAINST TRANSPLANT REJECTION
     Dosage: 6 MG, 1X/DAY
     Route: 048
     Dates: start: 20090306

REACTIONS (1)
  - Endophthalmitis [Recovered/Resolved with Sequelae]
